FAERS Safety Report 19893784 (Version 3)
Quarter: 2021Q4

REPORT INFORMATION
  Report Type: Spontaneous
  Country: BR (occurrence: BR)
  Receive Date: 20210929
  Receipt Date: 20211213
  Transmission Date: 20220303
  Serious: Yes (Death, Life-Threatening, Hospitalization)
  Sender: FDA-Public Use
  Company Number: BR-CHIESI-2021CHF04794

PATIENT
  Age: 0 Day
  Sex: Male
  Weight: 2.415 kg

DRUGS (2)
  1. CUROSURF [Suspect]
     Active Substance: PORACTANT ALFA
     Indication: Neonatal respiratory distress syndrome
     Dosage: 1 DOSAGE FORM, QD
     Route: 038
     Dates: start: 20210901, end: 20210901
  2. CUROSURF [Suspect]
     Active Substance: PORACTANT ALFA
     Dosage: 2 DOSAGE FORM
     Route: 038
     Dates: start: 20210902, end: 202109

REACTIONS (6)
  - Intraventricular haemorrhage [Fatal]
  - Product use issue [Fatal]
  - Neonatal respiratory distress syndrome [Recovered/Resolved]
  - Condition aggravated [Recovered/Resolved]
  - Drug effect less than expected [Recovered/Resolved]
  - Product complaint [Recovered/Resolved]

NARRATIVE: CASE EVENT DATE: 20210901
